FAERS Safety Report 6071661-9 (Version None)
Quarter: 2009Q1

REPORT INFORMATION
  Report Type: 
  Country: None (occurrence: None)
  Receive Date: 20090210
  Receipt Date: 20090203
  Transmission Date: 20090719
  Serious: Yes (Life-Threatening, Hospitalization)
  Sender: FDA-Public Use
  Company Number: IN-AVENTIS-200910839GDDC

PATIENT
  Age: 49 Year
  Sex: Male
  Weight: 55 kg

DRUGS (11)
  1. PLACEBO [Suspect]
     Indication: NON-SMALL CELL LUNG CANCER
     Route: 042
     Dates: start: 20090114, end: 20090114
  2. DOCETAXEL [Suspect]
     Indication: NON-SMALL CELL LUNG CANCER
     Route: 042
     Dates: start: 20090114, end: 20090114
  3. COLGEN                             /00283202/ [Concomitant]
     Dates: start: 20080718
  4. MULTI-VITAMINS [Concomitant]
     Dates: start: 20080718
  5. HISTAC                             /00550801/ [Concomitant]
  6. MULTI-VITAMINS [Concomitant]
  7. EPTOIN [Concomitant]
  8. AUGMENTIN '125' [Concomitant]
  9. LEVOFLOXACIN [Concomitant]
  10. COMBIVENT                          /01261001/ [Concomitant]
     Route: 055
  11. AEROCORT [Concomitant]
     Route: 055

REACTIONS (6)
  - ANAEMIA [None]
  - ANOREXIA [None]
  - ASTHENIA [None]
  - HYPOKALAEMIA [None]
  - NAUSEA [None]
  - RESPIRATORY TRACT INFECTION [None]
